FAERS Safety Report 10973218 (Version 1)
Quarter: 2015Q2

REPORT INFORMATION
  Report Type: Spontaneous
  Country: PL (occurrence: PL)
  Receive Date: 20150401
  Receipt Date: 20150401
  Transmission Date: 20150821
  Serious: Yes (Hospitalization, Other)
  Sender: FDA-Public Use
  Company Number: PL-BAUSCH-BL-2015-010488

PATIENT
  Age: 13 Year
  Sex: Female
  Weight: 67 kg

DRUGS (2)
  1. DICLO DUO 75 [Suspect]
     Active Substance: DICLOFENAC SODIUM
     Indication: ABNORMAL BEHAVIOUR
     Route: 048
     Dates: start: 20010116
  2. AMLODYPINA 10 [Suspect]
     Active Substance: AMLODIPINE BESYLATE
     Indication: ABNORMAL BEHAVIOUR
     Route: 048
     Dates: start: 20010116

REACTIONS (7)
  - Headache [Recovered/Resolved]
  - Somnolence [Recovered/Resolved]
  - Intentional overdose [Recovered/Resolved]
  - Blood pressure decreased [Recovered/Resolved]
  - Abdominal pain upper [Recovered/Resolved]
  - Nausea [Recovered/Resolved]
  - Visual impairment [Recovered/Resolved]

NARRATIVE: CASE EVENT DATE: 20150116
